FAERS Safety Report 20656917 (Version 1)
Quarter: 2022Q1

REPORT INFORMATION
  Report Type: Spontaneous
  Country: JP (occurrence: JP)
  Receive Date: 20220331
  Receipt Date: 20220331
  Transmission Date: 20220423
  Serious: Yes (Other)
  Sender: FDA-Public Use
  Company Number: JP-NOVARTISPH-NVSJ2022JP005327

PATIENT
  Age: 70 Year
  Sex: Female

DRUGS (1)
  1. METFORMIN HYDROCHLORIDE\VILDAGLIPTIN [Suspect]
     Active Substance: METFORMIN HYDROCHLORIDE\VILDAGLIPTIN
     Indication: Product used for unknown indication
     Dosage: 1DF: VILDAGLIPTIN 50 MG, METFORMIN HYDROCHLORIDE 500 MG
     Route: 048

REACTIONS (3)
  - Eyelid ptosis [Unknown]
  - Swelling of eyelid [Unknown]
  - Visual field defect [Unknown]
